FAERS Safety Report 15458219 (Version 2)
Quarter: 2022Q1

REPORT INFORMATION
  Report Type: Spontaneous
  Country: GB (occurrence: GB)
  Receive Date: 20181003
  Receipt Date: 20220221
  Transmission Date: 20220423
  Serious: Yes (Other)
  Sender: FDA-Public Use
  Company Number: GB-TEVA-2018-GB-959292

PATIENT
  Age: 4 Month
  Sex: Female

DRUGS (19)
  1. FLUDARABINE [Suspect]
     Active Substance: FLUDARABINE PHOSPHATE
     Indication: Immunosuppressant drug therapy
     Dosage: FIRST TRANSPLANT: AGE 7 MONTHS
     Route: 065
  2. FLUDARABINE [Suspect]
     Active Substance: FLUDARABINE PHOSPHATE
     Dosage: SECOND TRANSPLANT: AGE 18 MONTHS
     Route: 065
     Dates: start: 2013
  3. TACROLIMUS [Suspect]
     Active Substance: TACROLIMUS
     Indication: Prophylaxis against graft versus host disease
     Route: 065
     Dates: start: 2013
  4. CYCLOSPORINE [Suspect]
     Active Substance: CYCLOSPORINE
     Indication: Prophylaxis against graft versus host disease
     Route: 065
  5. MYCOPHENOLATE MOFETIL [Suspect]
     Active Substance: MYCOPHENOLATE MOFETIL
     Indication: Prophylaxis against graft versus host disease
     Dosage: DURING 1ST TRANSPLANTATION
     Route: 065
  6. MYCOPHENOLATE MOFETIL [Suspect]
     Active Substance: MYCOPHENOLATE MOFETIL
     Dosage: DURING 2ND TRANSPLANTATION
     Dates: start: 2013
  7. ALEMTUZUMAB [Suspect]
     Active Substance: ALEMTUZUMAB
     Indication: Immunosuppressant drug therapy
     Dosage: LOW DOSE, FIRST TRANSPLANT: AGE 7 MONTHS
     Route: 065
  8. ALEMTUZUMAB [Suspect]
     Active Substance: ALEMTUZUMAB
     Dosage: SECOND TRANSPLANT: AGE 18 MONTHS
     Route: 065
     Dates: start: 2013
  9. INFLIXIMAB [Suspect]
     Active Substance: INFLIXIMAB
     Indication: Immunosuppressant drug therapy
     Dosage: DURING 1ST TRANSPLANTATION
     Route: 065
  10. INFLIXIMAB [Suspect]
     Active Substance: INFLIXIMAB
     Dosage: DURING 2ND TRANSPLANTATION
     Route: 065
  11. METHYLPREDNISOLONE [Suspect]
     Active Substance: METHYLPREDNISOLONE
     Indication: Immunosuppressant drug therapy
     Dosage: DOSE AT THE TIME OF FIRST TRANSPLANT (AGE OF 7 MONTHS)
     Route: 065
  12. METHYLPREDNISOLONE [Suspect]
     Active Substance: METHYLPREDNISOLONE
     Dosage: DOSE AT THE TIME OF FIRST TRANSPLANT (AGE OF 18 MONTHS)
     Route: 065
     Dates: end: 2015
  13. TREOSULFAN [Suspect]
     Active Substance: TREOSULFAN
     Indication: Immunosuppressant drug therapy
     Dosage: 36G/M2: FIRST TRANSPLANT: AGE 7 MONTHS
     Route: 065
  14. TREOSULFAN [Suspect]
     Active Substance: TREOSULFAN
     Dosage: 36G/M2: SECOND TRANSPLANT: AGE 18 MONTHS
     Route: 065
     Dates: start: 2013
  15. THIOTEPA [Suspect]
     Active Substance: THIOTEPA
     Indication: Immunosuppressant drug therapy
     Dosage: SECOND TRANSPLANT: AGE 18 MONTHS
     Route: 065
     Dates: start: 2013
  16. BCG VACCINE [Suspect]
     Active Substance: BCG VACCINE
     Indication: Immunisation
     Route: 065
  17. CIDOFOVIR [Suspect]
     Active Substance: CIDOFOVIR
     Indication: Immunosuppressant drug therapy
     Route: 065
  18. THYMOCYTE IMMUNE GLOBULIN NOS [Suspect]
     Active Substance: THYMOCYTE IMMUNE GLOBULIN NOS
     Indication: Immunosuppressant drug therapy
     Route: 065
  19. HYDROCORTISONE [Concomitant]
     Active Substance: HYDROCORTISONE
     Indication: Immunosuppressant drug therapy
     Route: 065
     Dates: start: 201509, end: 201510

REACTIONS (7)
  - Vaccination site inflammation [Unknown]
  - Lymphadenopathy [Unknown]
  - Gastroenteritis norovirus [Recovered/Resolved]
  - Adenovirus infection [Recovered/Resolved]
  - Immune reconstitution inflammatory syndrome [Unknown]
  - Hypertension [Unknown]
  - Thrombotic microangiopathy [Unknown]
